FAERS Safety Report 22887836 (Version 3)
Quarter: 2023Q4

REPORT INFORMATION
  Report Type: Report from Study
  Country: US (occurrence: US)
  Receive Date: 20230831
  Receipt Date: 20231213
  Transmission Date: 20240110
  Serious: Yes (Hospitalization)
  Sender: FDA-Public Use
  Company Number: US-UCBSA-2023042579

PATIENT
  Age: 78 Year
  Sex: Female
  Weight: 220 kg

DRUGS (1)
  1. CERTOLIZUMAB PEGOL [Suspect]
     Active Substance: CERTOLIZUMAB PEGOL
     Indication: Rheumatoid arthritis
     Dosage: 200 MILLIGRAM
     Dates: start: 20230811, end: 20230811

REACTIONS (6)
  - Fall [Recovered/Resolved with Sequelae]
  - Lower limb fracture [Recovered/Resolved with Sequelae]
  - Cast application [Recovered/Resolved with Sequelae]
  - Back injury [Unknown]
  - Limb injury [Unknown]
  - Asthenia [Unknown]

NARRATIVE: CASE EVENT DATE: 20230801
